FAERS Safety Report 7674780-6 (Version None)
Quarter: 2011Q3

REPORT INFORMATION
  Report Type: 
  Country: None (occurrence: None)
  Receive Date: 20110810
  Receipt Date: 20110803
  Transmission Date: 20111222
  Serious: Yes (Other)
  Sender: FDA-Public Use
  Company Number: JP-GLAXOSMITHKLINE-B0734663A

PATIENT
  Sex: Female

DRUGS (2)
  1. VALTREX [Suspect]
     Indication: ORAL HERPES
     Dosage: 1000MG PER DAY
     Route: 048
     Dates: start: 20110708, end: 20110712
  2. ARASENA-A [Concomitant]
     Indication: ORAL HERPES
     Route: 061
     Dates: start: 20110708, end: 20110715

REACTIONS (6)
  - LIP SWELLING [None]
  - DYSPHAGIA [None]
  - SPEECH DISORDER [None]
  - OROPHARYNGEAL DISCOMFORT [None]
  - ANGIOEDEMA [None]
  - RASH PAPULAR [None]
